FAERS Safety Report 16116636 (Version 10)
Quarter: 2020Q1

REPORT INFORMATION
  Report Type: Report from Study
  Country: None (occurrence: US)
  Receive Date: 20190326
  Receipt Date: 20200203
  Transmission Date: 20200409
  Serious: Yes (Hospitalization)
  Sender: FDA-Public Use
  Company Number: US-ABBVIE-19K-163-2617708-00

PATIENT
  Age: 54 Year
  Sex: Male

DRUGS (7)
  1. HUMIRA [Suspect]
     Active Substance: ADALIMUMAB
     Route: 058
     Dates: start: 2019, end: 20190319
  2. HUMIRA [Suspect]
     Active Substance: ADALIMUMAB
     Route: 058
     Dates: end: 20190101
  3. HUMIRA [Suspect]
     Active Substance: ADALIMUMAB
     Indication: ANKYLOSING SPONDYLITIS
     Route: 058
     Dates: start: 20181204, end: 20181218
  4. HUMIRA [Suspect]
     Active Substance: ADALIMUMAB
     Route: 058
     Dates: start: 201906, end: 2019
  5. HUMIRA [Suspect]
     Active Substance: ADALIMUMAB
     Route: 058
     Dates: start: 2019, end: 20190107
  6. HUMIRA [Suspect]
     Active Substance: ADALIMUMAB
     Dosage: CITRATE FREE
     Route: 058
     Dates: start: 201907
  7. HUMIRA [Suspect]
     Active Substance: ADALIMUMAB
     Route: 058
     Dates: start: 20190326, end: 201905

REACTIONS (32)
  - Cellulitis [Not Recovered/Not Resolved]
  - Ligament sprain [Recovering/Resolving]
  - Localised infection [Unknown]
  - Erythema [Unknown]
  - Scratch [Not Recovered/Not Resolved]
  - Musculoskeletal stiffness [Unknown]
  - Impaired healing [Recovering/Resolving]
  - Localised infection [Recovered/Resolved]
  - Loss of personal independence in daily activities [Unknown]
  - Feeling hot [Unknown]
  - Pain [Unknown]
  - Peripheral swelling [Unknown]
  - General physical health deterioration [Unknown]
  - Neck pain [Not Recovered/Not Resolved]
  - Back pain [Not Recovered/Not Resolved]
  - Peripheral swelling [Not Recovered/Not Resolved]
  - Mobility decreased [Not Recovered/Not Resolved]
  - Musculoskeletal stiffness [Not Recovered/Not Resolved]
  - Discomfort [Unknown]
  - Oedema peripheral [Unknown]
  - Pain in extremity [Unknown]
  - Arthralgia [Unknown]
  - General physical condition abnormal [Unknown]
  - Blister infected [Recovered/Resolved]
  - Skin ulcer [Not Recovered/Not Resolved]
  - Joint range of motion decreased [Unknown]
  - Fatigue [Recovering/Resolving]
  - Musculoskeletal stiffness [Recovering/Resolving]
  - Wound [Recovered/Resolved]
  - Dysstasia [Unknown]
  - Tenderness [Unknown]
  - Musculoskeletal pain [Unknown]

NARRATIVE: CASE EVENT DATE: 201812
